FAERS Safety Report 9453114 (Version 2)
Quarter: 2013Q4

REPORT INFORMATION
  Report Type: Spontaneous
  Country: CL (occurrence: CL)
  Receive Date: 20130812
  Receipt Date: 20131007
  Transmission Date: 20140711
  Serious: Yes (Hospitalization)
  Sender: FDA-Public Use
  Company Number: CL-BAYER-2013-097072

PATIENT
  Age: 22 Year
  Sex: Female
  Weight: 63 kg

DRUGS (1)
  1. YAZ [Suspect]
     Dosage: 1 DF, QD
     Route: 048
     Dates: start: 201102, end: 201307

REACTIONS (6)
  - Pyelonephritis [Recovered/Resolved]
  - Nausea [Recovered/Resolved]
  - Dysuria [Recovered/Resolved]
  - Back pain [Recovered/Resolved]
  - Abdominal distension [Recovered/Resolved]
  - Discomfort [Recovered/Resolved]
